FAERS Safety Report 10271037 (Version 3)
Quarter: 2014Q3

REPORT INFORMATION
  Report Type: Spontaneous
  Country: GR (occurrence: GR)
  Receive Date: 20140701
  Receipt Date: 20140709
  Transmission Date: 20150326
  Serious: Yes (Death, Life-Threatening, Hospitalization)
  Sender: FDA-Public Use
  Company Number: GR-B.I. PHARMACEUTICALS,INC./RIDGEFIELD-2014-BI-29350GB

PATIENT
  Age: 81 Year
  Sex: Male

DRUGS (3)
  1. PRADAXA [Suspect]
     Active Substance: DABIGATRAN ETEXILATE MESYLATE
     Indication: ATRIAL FIBRILLATION
     Dosage: 220 MG
     Route: 048
     Dates: start: 2012, end: 20140627
  2. DIOVAN [Concomitant]
     Active Substance: VALSARTAN
     Indication: HYPERTENSION
     Route: 065
     Dates: end: 20140630
  3. CONCOR [Concomitant]
     Active Substance: BISOPROLOL FUMARATE
     Indication: HYPERTENSION
     Route: 065
     Dates: end: 20140630

REACTIONS (3)
  - Coma [Not Recovered/Not Resolved]
  - Haemorrhagic stroke [Fatal]
  - Cardio-respiratory arrest [Not Recovered/Not Resolved]

NARRATIVE: CASE EVENT DATE: 20140627
